FAERS Safety Report 6866643-0 (Version None)
Quarter: 2010Q3

REPORT INFORMATION
  Report Type: 
  Country: None (occurrence: None)
  Receive Date: 20100722
  Receipt Date: 20100713
  Transmission Date: 20110219
  Serious: Yes (Disabling, Other)
  Sender: FDA-Public Use
  Company Number: GB-PURDUE-GBR-2010-0006812

PATIENT
  Age: 68 Year
  Sex: Male

DRUGS (11)
  1. MST CONTINUS TABLETS 10 MG [Suspect]
     Indication: PAIN
     Dosage: 2 DF, DAILY
     Route: 048
     Dates: start: 20100121, end: 20100530
  2. MST CONTINUS TABLETS 10 MG [Suspect]
     Indication: RHEUMATOID ARTHRITIS
  3. FUROSEMIDE [Concomitant]
     Dosage: 40 MG, UNK
  4. IMDUR [Concomitant]
     Dosage: 60 MG, UNK
  5. LACTULOSE [Concomitant]
  6. LANSOPRAZOLE [Concomitant]
     Dosage: 30 MG, UNK
  7. RAMIPRIL [Concomitant]
     Dosage: 5 MG, UNK
  8. SENNA-MINT WAF [Concomitant]
  9. SERTRALINE HCL [Concomitant]
  10. SIMVASTATIN [Concomitant]
     Dosage: 40 MG, UNK
  11. WARFARIN SODIUM [Concomitant]

REACTIONS (2)
  - DRY EYE [None]
  - DYSPNOEA [None]
